FAERS Safety Report 6303787-6 (Version None)
Quarter: 2009Q3

REPORT INFORMATION
  Report Type: 
  Country: None (occurrence: None)
  Receive Date: 20090805
  Receipt Date: 20090724
  Transmission Date: 20100115
  Serious: Yes (Hospitalization)
  Sender: FDA-Public Use
  Company Number: 2009AP002935

PATIENT
  Age: 59 Year
  Sex: Male

DRUGS (3)
  1. HYDROCHLOROTHIAZIDE [Suspect]
  2. CLOZARIL [Suspect]
  3. CELEXA [Suspect]

REACTIONS (2)
  - CONVULSION [None]
  - HYPONATRAEMIA [None]
